FAERS Safety Report 4475857-9 (Version None)
Quarter: 2004Q4

REPORT INFORMATION
  Report Type: 
  Country: None (occurrence: None)
  Receive Date: 20041015
  Receipt Date: 20040929
  Transmission Date: 20050328
  Serious: Yes (Other)
  Sender: FDA-Public Use
  Company Number: PHBS2004JP13067

PATIENT
  Age: 26 Year
  Sex: Female

DRUGS (2)
  1. CYCLOSPORINE [Suspect]
     Indication: LUPUS NEPHRITIS
     Dosage: 50 MG/DAY
     Route: 048
     Dates: start: 20020101, end: 20030201
  2. PREDNISOLONE [Concomitant]
     Indication: LUPUS NEPHRITIS

REACTIONS (6)
  - ARTHRALGIA [None]
  - COMPLEMENT FACTOR DECREASED [None]
  - LUPUS NEPHRITIS [None]
  - NEPHROTIC SYNDROME [None]
  - PAIN IN EXTREMITY [None]
  - PROTEINURIA [None]
